FAERS Safety Report 4684420-6 (Version None)
Quarter: 2005Q2

REPORT INFORMATION
  Report Type: 
  Country: None (occurrence: None)
  Receive Date: 20050531
  Receipt Date: 20040519
  Transmission Date: 20051028
  Serious: Yes (Death)
  Sender: FDA-Public Use
  Company Number: 200410662US

PATIENT
  Age: 89 Year
  Sex: Male

DRUGS (5)
  1. LOVENOX [Suspect]
     Indication: ATRIAL FIBRILLATION
     Dosage: 70 MG BID
     Dates: start: 20040110, end: 20040126
  2. LOVENOX [Suspect]
     Indication: BED REST
     Dosage: 70 MG BID
     Dates: start: 20040110, end: 20040126
  3. LOVENOX [Suspect]
     Indication: HEMIPARESIS
     Dosage: 70 MG BID
     Dates: start: 20040110, end: 20040126
  4. LOVENOX [Suspect]
     Indication: HEMIPLEGIA
     Dosage: 70 MG BID
     Dates: start: 20040110, end: 20040126
  5. ASPIRIN [Concomitant]

REACTIONS (3)
  - FAECAL OCCULT BLOOD POSITIVE [None]
  - GASTROINTESTINAL HAEMORRHAGE [None]
  - HAEMOGLOBIN DECREASED [None]
